FAERS Safety Report 16133206 (Version 2)
Quarter: 2019Q2

REPORT INFORMATION
  Report Type: Spontaneous
  Country: FR (occurrence: FR)
  Receive Date: 20190329
  Receipt Date: 20190423
  Transmission Date: 20190711
  Serious: Yes (Congenital Anomaly)
  Sender: FDA-Public Use
  Company Number: FR-UCBSA-2019011596

PATIENT
  Age: 0 Year
  Sex: Male
  Weight: 2.71 kg

DRUGS (7)
  1. LEVETIRACETAM. [Suspect]
     Active Substance: LEVETIRACETAM
     Dosage: AT 750MG IN THE MORNING, 750 MG AT NOON AND 500MG IN THE EVENING
     Route: 064
     Dates: start: 20180928, end: 20190224
  2. ASPIRINE [Suspect]
     Active Substance: ASPIRIN
     Indication: PROPHYLAXIS
     Dosage: 100MG DAILY
     Route: 064
     Dates: start: 20180618, end: 20190224
  3. LEVETIRACETAM. [Suspect]
     Active Substance: LEVETIRACETAM
     Indication: EPILEPSY
     Dosage: 750 MILLIGRAM, 3X/DAY (TID)
     Route: 064
     Dates: start: 20180618, end: 20180827
  4. LEVETIRACETAM. [Suspect]
     Active Substance: LEVETIRACETAM
     Dosage: 750MG IN THE MORNING 500 MG NOON AND 500MG IN THE EVENING
     Route: 064
     Dates: start: 20180827, end: 20180928
  5. LAMOTRIGINE. [Suspect]
     Active Substance: LAMOTRIGINE
     Indication: EPILEPSY
     Dosage: 75 MILLIGRAM, 2X/DAY (BID)
     Route: 064
     Dates: start: 20180618, end: 20180827
  6. LAMOTRIGINE. [Suspect]
     Active Substance: LAMOTRIGINE
     Dosage: 100MG IN THE MORNING AND 75MG IN THE EVENING
     Route: 064
     Dates: start: 20180827, end: 20180928
  7. LAMOTRIGINE. [Suspect]
     Active Substance: LAMOTRIGINE
     Dosage: 100 MILLIGRAM, 2X/DAY (BID)
     Route: 064
     Dates: start: 20180928, end: 20190224

REACTIONS (3)
  - Urinary tract disorder [Not Recovered/Not Resolved]
  - Cyst [Not Recovered/Not Resolved]
  - Maternal exposure before pregnancy [Unknown]

NARRATIVE: CASE EVENT DATE: 20180618
